FAERS Safety Report 8857714 (Version 4)
Quarter: 2014Q1

REPORT INFORMATION
  Report Type: Spontaneous
  Country: US (occurrence: US)
  Receive Date: 20121024
  Receipt Date: 20140314
  Transmission Date: 20141002
  Serious: Yes (Other)
  Sender: FDA-Public Use
  Company Number: US-PFIZER INC-2012263695

PATIENT
  Age: 49 Year
  Sex: Female

DRUGS (2)
  1. DILANTIN [Suspect]
     Indication: CONVULSION
     Dosage: 200 MG, 2X/DAY (100 MG 2 TABS PO BID)
     Route: 048
  2. MELOXICAM [Suspect]
     Indication: PAIN
     Dosage: 15 MG 1/2 TAB PO BID PRN
     Route: 048

REACTIONS (5)
  - Medication error [Unknown]
  - Toxicity to various agents [Unknown]
  - Drug ineffective [Unknown]
  - Impaired work ability [Unknown]
  - Head injury [Unknown]
